FAERS Safety Report 12133658 (Version 1)
Quarter: 2016Q1

REPORT INFORMATION
  Report Type: Spontaneous
  Country: BR (occurrence: BR)
  Receive Date: 20160301
  Receipt Date: 20160301
  Transmission Date: 20160526
  Serious: Yes (Other)
  Sender: FDA-Public Use
  Company Number: PHHY2016BR025634

PATIENT
  Age: 51 Year
  Sex: Male

DRUGS (3)
  1. AZATHIOPRINE. [Suspect]
     Active Substance: AZATHIOPRINE
     Indication: EYE INFECTION SYPHILITIC
     Dosage: 200 MG, QD
     Route: 065
  2. METHYLPREDNISOLONE. [Suspect]
     Active Substance: METHYLPREDNISOLONE
     Indication: EYE INFECTION SYPHILITIC
     Route: 065
  3. PREDNISONE. [Suspect]
     Active Substance: PREDNISONE
     Indication: EYE INFECTION SYPHILITIC
     Dosage: 60 MG, QD
     Route: 065

REACTIONS (3)
  - Visual acuity reduced [Recovering/Resolving]
  - Medication error [Unknown]
  - Uveitis [Recovered/Resolved]
